FAERS Safety Report 8777360 (Version 1)
Quarter: 2012Q4

REPORT INFORMATION
  Report Type: 
  Country: US (occurrence: US)
  Receive Date: 20120911
  Receipt Date: 20120911
  Transmission Date: 20130627
  Serious: Yes (Other)
  Sender: FDA-Public Use
  Company Number: US-ENDO PHARMACEUTICALS INC.-COAC20120002

PATIENT
  Sex: Male

DRUGS (1)
  1. CODEINE PHOSPHATE / ACETAMINOPHEN [Suspect]
     Indication: DRUG DIVERSION
     Dosage: UNKNOWN

REACTIONS (1)
  - Drug diversion [Unknown]
